FAERS Safety Report 12535722 (Version 2)
Quarter: 2016Q4

REPORT INFORMATION
  Report Type: Spontaneous
  Country: US (occurrence: US)
  Receive Date: 20160707
  Receipt Date: 20161018
  Transmission Date: 20170207
  Serious: Yes (Hospitalization, Other)
  Sender: FDA-Public Use
  Company Number: US-BRISTOL-MYERS SQUIBB COMPANY-BMS-2016-054673

PATIENT
  Sex: Male
  Weight: 63.49 kg

DRUGS (1)
  1. EMPLICITI [Suspect]
     Active Substance: ELOTUZUMAB
     Indication: PLASMA CELL MYELOMA
     Dosage: UNK, Q2WK
     Route: 065

REACTIONS (13)
  - Decreased appetite [Unknown]
  - Dyskinesia [Unknown]
  - Nausea [Unknown]
  - Diarrhoea [Unknown]
  - Pyrexia [Unknown]
  - Vomiting [Unknown]
  - Petit mal epilepsy [Unknown]
  - Burning sensation [Unknown]
  - Constipation [Unknown]
  - Oedema [Unknown]
  - Chills [Unknown]
  - Weight decreased [Unknown]
  - Head discomfort [Unknown]
